FAERS Safety Report 24665335 (Version 1)
Quarter: 2024Q4

REPORT INFORMATION
  Report Type: Spontaneous
  Country: AU (occurrence: AU)
  Receive Date: 20241126
  Receipt Date: 20241126
  Transmission Date: 20250114
  Serious: Yes (Hospitalization, Other)
  Sender: MERCK
  Company Number: AU-009507513-2411AUS009608

PATIENT
  Age: 64 Year
  Sex: Male

DRUGS (2)
  1. KEYTRUDA [Suspect]
     Active Substance: PEMBROLIZUMAB
     Indication: Non-small cell lung cancer
     Dosage: DOSE FORM: SOLUTION FOR INFUSION; ROUTE OF ADMINISTRATION: INTRAVENOUS, Q3W, 200 MG
     Route: 042
     Dates: start: 20240415, end: 20240506
  2. ONVAPEGLEUKIN ALFA [Suspect]
     Active Substance: ONVAPEGLEUKIN ALFA
     Indication: Non-small cell lung cancer
     Dosage: DOSE FORM: SOLUTION FOR INFUSION; ROUTE OF ADMINISTRATION: INTRAVENOUS, Q3W, 120 MCG
     Route: 042
     Dates: start: 20240415, end: 20240506

REACTIONS (1)
  - Renal impairment [Unknown]

NARRATIVE: CASE EVENT DATE: 20240816
